FAERS Safety Report 5375439-0 (Version None)
Quarter: 2007Q2

REPORT INFORMATION
  Report Type: 
  Country: None (occurrence: None)
  Receive Date: 20070629
  Receipt Date: 20070621
  Transmission Date: 20071010
  Serious: Yes (Life-Threatening)
  Sender: FDA-Public Use
  Company Number: AU-BOEHRINGER INGELHEIM PHARMACEUTICALS, INC.-2007-BP-12174AU

PATIENT
  Sex: Male

DRUGS (8)
  1. MICARDIS [Suspect]
     Route: 048
  2. DIAMICRON [Concomitant]
  3. SIMVAR [Concomitant]
  4. GLUCOHEXAL [Concomitant]
  5. CARDIZEM CD [Concomitant]
  6. PHENERGAN [Concomitant]
  7. SOLU-CORTEF [Concomitant]
  8. RANI 2 [Concomitant]

REACTIONS (2)
  - ANGIOEDEMA [None]
  - DYSPNOEA [None]
